FAERS Safety Report 8324971-6 (Version None)
Quarter: 2012Q2

REPORT INFORMATION
  Report Type: 
  Country: None (occurrence: None)
  Receive Date: 20120501
  Receipt Date: 20100222
  Transmission Date: 20120825
  Serious: No
  Sender: FDA-Public Use
  Company Number: US-TEVA-2010001001

PATIENT
  Age: 44 Year
  Sex: Female

DRUGS (2)
  1. PROVIGIL [Suspect]
     Dosage: 400 MILLIGRAM;
     Route: 048
  2. NUVIGIL [Suspect]
     Route: 048

REACTIONS (1)
  - AGITATION [None]
